FAERS Safety Report 16032135 (Version 1)
Quarter: 2019Q1

REPORT INFORMATION
  Report Type: Spontaneous
  Country: US (occurrence: US)
  Receive Date: 20190304
  Receipt Date: 20190304
  Transmission Date: 20190418
  Serious: No
  Sender: FDA-Public Use
  Company Number: US-GE HEALTHCARE LIFE SCIENCES-2018CSU004884

PATIENT
  Age: 73 Year
  Sex: Female

DRUGS (5)
  1. VISIPAQUE [Suspect]
     Active Substance: IODIXANOL
     Dosage: DILUTED WITH STERILE WATER 1:10
     Route: 023
  2. VISIPAQUE [Suspect]
     Active Substance: IODIXANOL
     Indication: SKIN TEST
     Dosage: UNDILUTED CONTRAST DYE
     Route: 003
  3. VISIPAQUE [Suspect]
     Active Substance: IODIXANOL
     Indication: TRANSCATHETER AORTIC VALVE IMPLANTATION
     Dosage: UNDILUTED CONTRAST DYE
     Route: 003
  4. VISIPAQUE [Suspect]
     Active Substance: IODIXANOL
     Indication: CARDIAC VALVE REPLACEMENT COMPLICATION
     Dosage: DILUTED WITH STERILE WATER 1:10
     Route: 023
  5. VISIPAQUE [Suspect]
     Active Substance: IODIXANOL
     Dosage: UNK, SINGLE
     Route: 013

REACTIONS (4)
  - Type I hypersensitivity [Recovered/Resolved]
  - Erythema [Recovered/Resolved]
  - Off label use [Unknown]
  - Pruritus [Recovered/Resolved]
